FAERS Safety Report 7539282-6 (Version None)
Quarter: 2011Q2

REPORT INFORMATION
  Report Type: 
  Country: None (occurrence: None)
  Receive Date: 20110610
  Receipt Date: 20110602
  Transmission Date: 20111010
  Serious: Yes (Hospitalization, Other)
  Sender: FDA-Public Use
  Company Number: BR-ELI_LILLY_AND_COMPANY-BR201106000897

PATIENT
  Sex: Female
  Weight: 98 kg

DRUGS (1)
  1. HUMALOG MIX 75/25 [Suspect]
     Indication: TYPE 2 DIABETES MELLITUS
     Dosage: UNK, BID
     Route: 058
     Dates: start: 20010101

REACTIONS (2)
  - ABDOMINAL HERNIA [None]
  - PANCREATIC NEOPLASM [None]
